FAERS Safety Report 8249701-8 (Version None)
Quarter: 2012Q2

REPORT INFORMATION
  Report Type: 
  Country: None (occurrence: None)
  Receive Date: 20120402
  Receipt Date: 20120329
  Transmission Date: 20120825
  Serious: Yes (Death)
  Sender: FDA-Public Use
  Company Number: JP-BRISTOL-MYERS SQUIBB COMPANY-15918378

PATIENT
  Age: 70 Year
  Sex: Male
  Weight: 50 kg

DRUGS (12)
  1. CARVEDILOL [Concomitant]
     Dosage: ARTIST TABS
  2. LYRICA [Concomitant]
     Indication: SPINAL OSTEOARTHRITIS
     Dosage: LYRICA CAPS
  3. PLAVIX [Concomitant]
     Dosage: PLAVIX 75MG TABS
  4. LIPITOR [Concomitant]
     Dosage: LIPITOR TABS
  5. ISONIAZID [Concomitant]
     Dosage: ISCOTIN TABS
  6. CELECOXIB [Concomitant]
     Indication: RHEUMATOID ARTHRITIS
  7. CELECOXIB [Concomitant]
     Dosage: CELECOXIB TABS
  8. ACTONEL [Concomitant]
     Indication: OSTEOPOROSIS
     Dosage: ACTONEL TBAS
  9. ORENCIA [Suspect]
     Indication: RHEUMATOID ARTHRITIS
     Dosage: NO OF DOSE: 5. 1DF= 500MG/BODY. DATE OF ADMIN: 26MAR11,9APR11,7MAY11.
     Route: 041
     Dates: start: 20110312, end: 20110604
  10. PREDNISOLONE [Concomitant]
     Dosage: PREDONINE TABS
  11. ASPIRIN [Concomitant]
     Dosage: BAYASPIRIN TABS 100MG/DAY
  12. NICORANDIL [Concomitant]
     Dosage: NICORANDIL TABS

REACTIONS (2)
  - INTERSTITIAL LUNG DISEASE [None]
  - WOUND INFECTION STAPHYLOCOCCAL [None]
